FAERS Safety Report 9547057 (Version 2)
Quarter: 2013Q3

REPORT INFORMATION
  Report Type: Spontaneous
  Country: US (occurrence: US)
  Receive Date: 20130924
  Receipt Date: 20130926
  Transmission Date: 20140515
  Serious: Yes (Hospitalization, Other)
  Sender: FDA-Public Use
  Company Number: US-AMGEN-USASP2013066301

PATIENT
  Age: 82 Year
  Sex: Male

DRUGS (19)
  1. NEULASTA [Suspect]
     Indication: NEUTROPENIA
     Dosage: UNK
     Route: 065
     Dates: start: 20130913
  2. ALEVE [Concomitant]
     Indication: BONE PAIN
     Dosage: 200 MG, EVERY SIX HOURS AS NEEDED
  3. ASPIRIN [Concomitant]
     Dosage: 81 MG, DAILY
  4. COREG [Concomitant]
     Dosage: 12.5 MG, TWICE DAILY
  5. FINASTERIDE [Concomitant]
     Dosage: 5 MG, DAILY
  6. LISINOPRIL [Concomitant]
     Dosage: 20 MG, DAILY
  7. LOVASTATIN [Concomitant]
     Dosage: 20 MG, AT BEDTIME
  8. FLOMAX                             /01280302/ [Concomitant]
     Dosage: 0.4 MG, AT BEDTIME
  9. PREDNISONE [Concomitant]
     Dosage: 60 MG, WHILE ON TREATMENT DAYS 15
  10. LORTAB                             /00607101/ [Concomitant]
     Indication: BONE PAIN
     Dosage: 5/500 EVERY SIX HOURS AS NEEDED
  11. ALBUTEROL                          /00139501/ [Concomitant]
     Dosage: UNK
  12. ATROVENT [Concomitant]
     Dosage: UNK
  13. CARDIZEM                           /00489701/ [Concomitant]
     Dosage: 240 MG, DAILY
  14. FONDAPARINUX [Concomitant]
     Dosage: UNK
  15. RITUXIMAB [Concomitant]
     Indication: B-CELL LYMPHOMA
     Dosage: UNK
     Dates: start: 201307
  16. CYCLOPHOSPHAMIDE [Concomitant]
     Indication: B-CELL LYMPHOMA
     Dosage: UNK
     Dates: start: 201307
  17. DOXORUBICIN [Concomitant]
     Indication: B-CELL LYMPHOMA
     Dosage: UNK
     Dates: start: 201307
  18. ONCOVIN [Concomitant]
     Indication: B-CELL LYMPHOMA
     Dosage: UNK
     Dates: start: 201307
  19. PREDNISOLONE [Concomitant]
     Indication: B-CELL LYMPHOMA
     Dosage: UNK
     Dates: start: 201307

REACTIONS (4)
  - White blood cell count abnormal [Unknown]
  - Atrial fibrillation [Unknown]
  - Neutrophil count abnormal [Unknown]
  - Bone pain [Unknown]
